FAERS Safety Report 12468077 (Version 3)
Quarter: 2016Q3

REPORT INFORMATION
  Report Type: Spontaneous
  Country: US (occurrence: US)
  Receive Date: 20160615
  Receipt Date: 20160917
  Transmission Date: 20161109
  Serious: Yes (Other)
  Sender: FDA-Public Use
  Company Number: PHEH2016US014693

PATIENT
  Age: 44 Year
  Sex: Female

DRUGS (2)
  1. ZYKADIA [Suspect]
     Active Substance: CERITINIB
     Indication: LUNG NEOPLASM MALIGNANT
     Dosage: 150 MG, UNK
     Route: 048
  2. ZYKADIA [Suspect]
     Active Substance: CERITINIB
     Dosage: 450 MG, QD
     Route: 048
     Dates: start: 20160131

REACTIONS (6)
  - Nasal discomfort [Unknown]
  - Product physical issue [Recovered/Resolved]
  - Malignant neoplasm progression [Unknown]
  - Product use issue [Unknown]
  - Lung neoplasm malignant [Unknown]
  - Throat irritation [Unknown]

NARRATIVE: CASE EVENT DATE: 20160501
